FAERS Safety Report 5245182-7 (Version None)
Quarter: 2007Q1

REPORT INFORMATION
  Report Type: 
  Country: None (occurrence: None)
  Receive Date: 20070223
  Receipt Date: 20070216
  Transmission Date: 20070707
  Serious: Yes (Other)
  Sender: FDA-Public Use
  Company Number: BR-JNJFOC-20070204347

PATIENT
  Age: 47 Year
  Sex: Female

DRUGS (2)
  1. ACETAMINOPHEN W/ CODEINE [Suspect]
     Indication: INTERVERTEBRAL DISC PROTRUSION
     Route: 048
  2. KETOPROFEN [Concomitant]
     Indication: INTERVERTEBRAL DISC PROTRUSION

REACTIONS (2)
  - HALLUCINATION, VISUAL [None]
  - PRURITUS [None]
